FAERS Safety Report 16147866 (Version 5)
Quarter: 2021Q2

REPORT INFORMATION
  Report Type: Report from Study
  Country: US (occurrence: US)
  Receive Date: 20190402
  Receipt Date: 20210531
  Transmission Date: 20210716
  Serious: Yes (Hospitalization)
  Sender: FDA-Public Use
  Company Number: US-ROCHE-2282120

PATIENT
  Age: 49 Year
  Sex: Female
  Weight: 54.2 kg

DRUGS (30)
  1. CBD OIL [Concomitant]
     Active Substance: CANNABIDIOL\HERBALS
     Dates: start: 20180703
  2. TURKEY TAIL MUSHROOM [Concomitant]
     Dates: start: 20180814
  3. CARBOPLATIN. [Suspect]
     Active Substance: CARBOPLATIN
     Indication: OVARIAN CANCER
     Dosage: FOR A TOTAL OF 6 CYCLES?AT DOSES TO ACHIEVE AREA UNDER THE CONCENTRATION?TIME CURVE (AUC) OF 6 MG/ML
     Route: 042
     Dates: start: 20180509
  4. VITAMIN C [Concomitant]
     Active Substance: ASCORBIC ACID
     Dates: start: 20180504
  5. DILAUDID [Concomitant]
     Active Substance: HYDROMORPHONE HYDROCHLORIDE
     Indication: ABDOMINAL PAIN
     Dosage: 6 MG/30 ML IN D5W PCA
     Dates: start: 20190308, end: 20190312
  6. PEPCIDIN [Concomitant]
     Indication: PROPHYLAXIS
     Dates: start: 20190327, end: 20190331
  7. SUBLIMAZE [Concomitant]
     Active Substance: FENTANYL CITRATE
     Dosage: 25?100 MCG AND 50 MCG/ML
     Dates: start: 20190328, end: 20190328
  8. VERSED [Concomitant]
     Active Substance: MIDAZOLAM HYDROCHLORIDE
     Dosage: 1 MG/ML, 0.5?2 MG
     Dates: start: 20190328, end: 20190328
  9. ATEZOLIZUMAB. [Suspect]
     Active Substance: ATEZOLIZUMAB
     Indication: OVARIAN CANCER
     Dosage: DATE OF MOST RECENT DOSE OF ATEZOLIZUMAB PRIOR TO SAE ONSET :06/MAR/2019
     Route: 042
     Dates: start: 20180509
  10. TYLENOL [Concomitant]
     Active Substance: ACETAMINOPHEN
     Indication: ABDOMINAL PAIN
     Dates: start: 20190308, end: 20190331
  11. BEVACIZUMAB. [Suspect]
     Active Substance: BEVACIZUMAB
     Indication: OVARIAN CANCER
     Dosage: DATE OF MOST RECENT DOSE OF BEVACIZUMAB 837 MG PRIOR TO SAE ONSET :06/MAR/2019
     Route: 042
     Dates: start: 20180530
  12. VITAMIN D3 [Concomitant]
     Active Substance: CHOLECALCIFEROL
     Dates: start: 20180320
  13. SYNTHROID [Concomitant]
     Active Substance: LEVOTHYROXINE SODIUM
     Dates: start: 20190207
  14. COLACE [Concomitant]
     Active Substance: DOCUSATE SODIUM
     Indication: CONSTIPATION
     Dates: start: 20190330, end: 20190331
  15. PACLITAXEL. [Suspect]
     Active Substance: PACLITAXEL
     Indication: OVARIAN CANCER
     Dosage: DATE OF MOST RECENT DOSE OF PACLITAXEL 270 MG PRIOR TO SAE ONSET: 29/AUG/2018
     Route: 042
     Dates: start: 20180509
  16. SYNTHROID [Concomitant]
     Active Substance: LEVOTHYROXINE SODIUM
     Indication: HYPOTHYROIDISM
     Dates: start: 20180822, end: 20190206
  17. ELIQUIS [Concomitant]
     Active Substance: APIXABAN
     Dates: start: 20190206, end: 20190829
  18. TYLENOL [Concomitant]
     Active Substance: ACETAMINOPHEN
     Indication: SCIATICA
  19. ROXICODONE [Concomitant]
     Active Substance: OXYCODONE HYDROCHLORIDE
     Indication: SCIATICA
     Dosage: 5?10 MG
     Dates: start: 20190326, end: 20190331
  20. MAGNESIUM MALATE. [Concomitant]
     Active Substance: MAGNESIUM MALATE
     Dates: start: 20180320, end: 20190906
  21. PRINIVIL [Concomitant]
     Active Substance: LISINOPRIL
     Indication: HYPERTENSION
     Dates: start: 20180530, end: 20190829
  22. FLAGYL [Concomitant]
     Active Substance: METRONIDAZOLE\METRONIDAZOLE HYDROCHLORIDE
     Indication: PELVIC ABSCESS
     Dates: start: 20190331, end: 20190410
  23. BACTRIM [Concomitant]
     Active Substance: SULFAMETHOXAZOLE\TRIMETHOPRIM
     Indication: PELVIC ABSCESS
     Dosage: 160?800 MG PER TABLET
     Dates: start: 20190331, end: 20190410
  24. D?MANNOSE [Concomitant]
     Dates: start: 20180504
  25. ZOFRAN [Concomitant]
     Active Substance: ONDANSETRON HYDROCHLORIDE
     Indication: NAUSEA
     Dosage: 4 TO 8 MG, 2 MG/ML
     Dates: start: 20190308, end: 20190313
  26. TORADOL [Concomitant]
     Active Substance: KETOROLAC TROMETHAMINE
     Indication: ABDOMINAL PAIN
     Dosage: 30 MG/ML
     Dates: start: 20190308, end: 20190309
  27. ZOFRAN [Concomitant]
     Active Substance: ONDANSETRON HYDROCHLORIDE
     Dosage: 2 MG/ML
     Dates: start: 20190328, end: 20190328
  28. AUGMENTINE [Concomitant]
     Active Substance: AMOXICILLIN\CLAVULANATE POTASSIUM
     Indication: PELVIC ABSCESS
     Dosage: 875?125 MG PER TABLET
     Dates: start: 20190312, end: 20190326
  29. AUGMENTINE [Concomitant]
     Active Substance: AMOXICILLIN\CLAVULANATE POTASSIUM
     Dosage: 875?125 MG PER TABLET
     Dates: start: 20190331, end: 20190331
  30. DIGESTIVE ENZYMES (UNK INGREDIENTS) [Concomitant]
     Route: 048
     Dates: start: 20180416

REACTIONS (2)
  - Pelvic abscess [Recovered/Resolved]
  - Procedural intestinal perforation [Recovered/Resolved]

NARRATIVE: CASE EVENT DATE: 20190307
